FAERS Safety Report 7878029-0 (Version None)
Quarter: 2011Q4

REPORT INFORMATION
  Report Type: 
  Country: None (occurrence: None)
  Receive Date: 20111101
  Receipt Date: 20111019
  Transmission Date: 20120403
  Serious: Yes (Other)
  Sender: FDA-Public Use
  Company Number: GB-ROCHE-1000374

PATIENT
  Age: 57 Year
  Sex: Male

DRUGS (3)
  1. FLUCONAZOLE [Suspect]
     Indication: RENAL TRANSPLANT
  2. PREDNISOLONE [Suspect]
     Indication: RENAL TRANSPLANT
  3. MYCOPHENOLATE MOFETIL [Suspect]
     Indication: RENAL TRANSPLANT

REACTIONS (9)
  - HYPERPLASIA [None]
  - FUNGAL INFECTION [None]
  - SECRETION DISCHARGE [None]
  - SKIN LESION [None]
  - NODULE [None]
  - SUBCUTANEOUS ABSCESS [None]
  - CYST [None]
  - MYCETOMA MYCOTIC [None]
  - QUALITY OF LIFE DECREASED [None]
